FAERS Safety Report 6996029-X (Version None)
Quarter: 2010Q3

REPORT INFORMATION
  Report Type: 
  Country: None (occurrence: None)
  Receive Date: 20100918
  Receipt Date: 20081215
  Transmission Date: 20110219
  Serious: No
  Sender: FDA-Public Use
  Company Number: US-WYE-H07281708

PATIENT

DRUGS (1)
  1. EFFEXOR XR [Suspect]

REACTIONS (1)
  - NONSPECIFIC REACTION [None]
